FAERS Safety Report 11511918 (Version 1)
Quarter: 2015Q3

REPORT INFORMATION
  Report Type: Spontaneous
  Country: US (occurrence: US)
  Receive Date: 20150916
  Receipt Date: 20150916
  Transmission Date: 20151125
  Serious: Yes (Other)
  Sender: FDA-Public Use
  Company Number: US-JNJFOC-20150902390

PATIENT

DRUGS (1)
  1. TYLENOL PM EXTRA STRENGTH [Suspect]
     Active Substance: ACETAMINOPHEN\DIPHENHYDRAMINE HYDROCHLORIDE
     Indication: PRODUCT USED FOR UNKNOWN INDICATION
     Dosage: 10,000-15,000 MG, EVERY SINGLE NIGHT SOMETIMES EVEN TWICE.
     Route: 048

REACTIONS (3)
  - Intentional overdose [Unknown]
  - Pollakiuria [Unknown]
  - Flank pain [Unknown]
